FAERS Safety Report 25008557 (Version 1)
Quarter: 2025Q1

REPORT INFORMATION
  Report Type: Spontaneous
  Country: US (occurrence: US)
  Receive Date: 20250225
  Receipt Date: 20250225
  Transmission Date: 20250408
  Serious: Yes (Other)
  Sender: STRIDES
  Company Number: US-STRIDES ARCOLAB LIMITED-2025SP002470

PATIENT
  Age: 40 Year
  Sex: Female

DRUGS (7)
  1. PREDNISONE [Suspect]
     Active Substance: PREDNISONE
     Indication: Central serous chorioretinopathy
     Route: 048
  2. PREDNISONE [Suspect]
     Active Substance: PREDNISONE
     Route: 048
  3. ACETAZOLAMIDE [Suspect]
     Active Substance: ACETAZOLAMIDE
     Indication: Central serous chorioretinopathy
     Route: 048
  4. BEVACIZUMAB [Suspect]
     Active Substance: BEVACIZUMAB
     Indication: Central serous chorioretinopathy
  5. EPLERENONE [Suspect]
     Active Substance: EPLERENONE
     Indication: Central serous chorioretinopathy
     Route: 048
  6. FARICIMAB [Suspect]
     Active Substance: FARICIMAB
     Indication: Central serous chorioretinopathy
  7. KETOROLAC [Suspect]
     Active Substance: KETOROLAC TROMETHAMINE
     Indication: Central serous chorioretinopathy
     Route: 061

REACTIONS (4)
  - Subretinal fluid [Recovered/Resolved]
  - Condition aggravated [Unknown]
  - Therapy non-responder [Unknown]
  - Off label use [Unknown]
